FAERS Safety Report 6114617-X (Version None)
Quarter: 2009Q1

REPORT INFORMATION
  Report Type: 
  Country: None (occurrence: None)
  Receive Date: 20090313
  Receipt Date: 20090303
  Transmission Date: 20090719
  Serious: Yes (Death)
  Sender: FDA-Public Use
  Company Number: US-BIOGENIDEC-2009BI000689

PATIENT
  Age: 62 Year
  Sex: Female

DRUGS (1)
  1. TYSABRI [Suspect]
     Indication: MULTIPLE SCLEROSIS
     Route: 042
     Dates: start: 20080804, end: 20081128

REACTIONS (5)
  - DEATH [None]
  - DIABETES MELLITUS [None]
  - HERPES VIRUS INFECTION [None]
  - IMMUNE SYSTEM DISORDER [None]
  - INFECTION [None]
